FAERS Safety Report 7227700-2 (Version None)
Quarter: 2011Q1

REPORT INFORMATION
  Report Type: 
  Country: None (occurrence: None)
  Receive Date: 20110114
  Receipt Date: 20110110
  Transmission Date: 20110831
  Serious: Yes (Other)
  Sender: FDA-Public Use
  Company Number: US-PFIZER INC-2011006373

PATIENT
  Sex: Female
  Weight: 63.492 kg

DRUGS (2)
  1. GEODON [Suspect]
     Indication: PSYCHOTIC DISORDER
     Dosage: 60 MG, 2X/DAY
     Route: 048
     Dates: start: 20101102, end: 20110110
  2. COGENTIN [Concomitant]
     Indication: ADVERSE DRUG REACTION
     Dosage: 1 MG, 1X/DAY
     Route: 048

REACTIONS (5)
  - TREMOR [None]
  - NAUSEA [None]
  - ANGINA PECTORIS [None]
  - PARAESTHESIA [None]
  - HEADACHE [None]
